FAERS Safety Report 7380637-0 (Version None)
Quarter: 2011Q1

REPORT INFORMATION
  Report Type: 
  Country: None (occurrence: None)
  Receive Date: 20110329
  Receipt Date: 20110317
  Transmission Date: 20110831
  Serious: Yes (Death, Hospitalization)
  Sender: FDA-Public Use
  Company Number: US-ACTELION-A-US2010-43319

PATIENT

DRUGS (2)
  1. TRACLEER [Suspect]
     Indication: PULMONARY ARTERIAL HYPERTENSION
     Dosage: UNK MG, UNK
     Route: 048
     Dates: start: 20100116, end: 20110101
  2. TADALAFIL [Concomitant]

REACTIONS (5)
  - DYSPNOEA [None]
  - RESPIRATORY FAILURE [None]
  - PULMONARY FIBROSIS [None]
  - CHRONIC OBSTRUCTIVE PULMONARY DISEASE [None]
  - ASTHENIA [None]
